FAERS Safety Report 6039490-X (Version None)
Quarter: 2009Q1

REPORT INFORMATION
  Report Type: 
  Country: None (occurrence: None)
  Receive Date: 20090114
  Receipt Date: 20081218
  Transmission Date: 20090719
  Serious: Yes (Hospitalization)
  Sender: FDA-Public Use
  Company Number: WAES0509USA04062

PATIENT
  Age: 73 Year
  Sex: Male

DRUGS (3)
  1. INDOMETHACIN [Suspect]
     Dosage: PO
     Route: 048
  2. ROFECOXIB [Suspect]
     Indication: OSTEOARTHRITIS
     Dosage: 25 MG DAILY, PO
     Route: 048
     Dates: start: 20010521, end: 20010629
  3. ROFECOXIB [Suspect]
     Dosage: 50 MG DAILY PO
     Route: 048
     Dates: start: 20030725, end: 20040527

REACTIONS (29)
  - AORTIC DISORDER [None]
  - ATELECTASIS [None]
  - BACK PAIN [None]
  - BURSITIS [None]
  - BURSITIS INFECTIVE STAPHYLOCOCCAL [None]
  - CHEST PAIN [None]
  - CONSTIPATION [None]
  - DEHYDRATION [None]
  - DISEASE RECURRENCE [None]
  - DIVERTICULITIS [None]
  - DIVERTICULUM INTESTINAL [None]
  - DYSPNOEA [None]
  - DYSPNOEA EXERTIONAL [None]
  - GASTROINTESTINAL HAEMORRHAGE [None]
  - GASTROINTESTINAL TRACT ADENOMA [None]
  - GOUT [None]
  - GRANULOMA [None]
  - HAEMATURIA [None]
  - LEFT ATRIAL DILATATION [None]
  - LYMPH NODE CALCIFICATION [None]
  - MITRAL VALVE PROLAPSE [None]
  - NEPHROLITHIASIS [None]
  - PANCREATIC ATROPHY [None]
  - PLEURAL FIBROSIS [None]
  - RENAL CYST [None]
  - RENAL FAILURE ACUTE [None]
  - RENAL FAILURE CHRONIC [None]
  - RIGHT ATRIAL DILATATION [None]
  - SINUS BRADYCARDIA [None]
